FAERS Safety Report 10962507 (Version 1)
Quarter: 2015Q1

REPORT INFORMATION
  Report Type: Spontaneous
  Country: US (occurrence: US)
  Receive Date: 20150327
  Receipt Date: 20150327
  Transmission Date: 20150721
  Serious: Yes (Life-Threatening, Hospitalization, Congenital Anomaly, Other)
  Sender: FDA-Public Use
  Company Number: US-ELI_LILLY_AND_COMPANY-US201503009233

PATIENT
  Age: 5 Month

DRUGS (1)
  1. PROZAC [Suspect]
     Active Substance: FLUOXETINE HYDROCHLORIDE
     Indication: DEPRESSION
     Dosage: 20 MG, QD
     Route: 064

REACTIONS (11)
  - Dilatation ventricular [Recovered/Resolved]
  - Renal failure [Recovered/Resolved]
  - Cardio-respiratory arrest [Recovered/Resolved]
  - Fluid overload [Recovered/Resolved]
  - Pneumothorax [Recovered/Resolved]
  - Renal tubular necrosis [Recovered/Resolved]
  - Maternal exposure during pregnancy [Recovered/Resolved]
  - Hypotension [Recovered/Resolved]
  - Pulmonary valve incompetence [Recovered/Resolved]
  - Fallot^s tetralogy [Recovered/Resolved]
  - Cardio-respiratory arrest [Recovered/Resolved]

NARRATIVE: CASE EVENT DATE: 20011220
